FAERS Safety Report 7602717-4 (Version None)
Quarter: 2011Q3

REPORT INFORMATION
  Report Type: 
  Country: None (occurrence: None)
  Receive Date: 20110712
  Receipt Date: 20110705
  Transmission Date: 20111222
  Serious: Yes (Death, Hospitalization)
  Sender: FDA-Public Use
  Company Number: TW-CELGENEUS-153-C5013-11062457

PATIENT
  Sex: Female
  Weight: 58.2 kg

DRUGS (4)
  1. DOXORUBICIN HCL [Concomitant]
     Route: 065
  2. REVLIMID [Suspect]
     Indication: MULTIPLE MYELOMA
     Dosage: 15 MILLIGRAM
     Route: 048
     Dates: start: 20110113, end: 20110621
  3. TIENAM [Concomitant]
     Indication: INFECTION
     Route: 065
  4. FLUCONAZOLE [Concomitant]
     Route: 065
     Dates: start: 20110702

REACTIONS (1)
  - PLASMACYTOMA [None]
